FAERS Safety Report 17606628 (Version 6)
Quarter: 2024Q4

REPORT INFORMATION
  Report Type: Report from Study
  Country: US (occurrence: US)
  Receive Date: 20200331
  Receipt Date: 20241004
  Transmission Date: 20250115
  Serious: Yes (Life-Threatening, Other)
  Sender: TAKEDA
  Company Number: US-SHIRE-US202011703

PATIENT
  Age: 54 Year
  Sex: Male

DRUGS (7)
  1. HEMOFIL [Suspect]
     Active Substance: ANTIHEMOPHILIC FACTOR HUMAN
     Indication: Haemorrhage
     Dosage: 4430 INTERNATIONAL UNIT
     Route: 042
  2. HEMOFIL [Suspect]
     Active Substance: ANTIHEMOPHILIC FACTOR HUMAN
     Indication: Haemophilia
     Dosage: 4685 INTERNATIONAL UNIT
     Route: 050
  3. HEMOFIL [Suspect]
     Active Substance: ANTIHEMOPHILIC FACTOR HUMAN
     Dosage: 2345 INTERNATIONAL UNIT, QD
     Route: 042
  4. HEMOFIL [Suspect]
     Active Substance: ANTIHEMOPHILIC FACTOR HUMAN
     Dosage: 2345 INTERNATIONAL UNIT
     Route: 050
  5. HEMOFIL [Suspect]
     Active Substance: ANTIHEMOPHILIC FACTOR HUMAN
     Dosage: 2345 INTERNATIONAL UNIT
     Route: 065
  6. FENTANYL [Suspect]
     Active Substance: FENTANYL
     Indication: Product used for unknown indication
     Dosage: UNK
     Route: 065
  7. CANNABIS SATIVA SUBSP. INDICA TOP [Suspect]
     Active Substance: CANNABIS SATIVA SUBSP. INDICA TOP
     Indication: Product used for unknown indication
     Dosage: UNK
     Route: 065

REACTIONS (15)
  - Near death experience [Unknown]
  - Haemorrhoidal haemorrhage [Recovered/Resolved]
  - Haemarthrosis [Unknown]
  - Contusion [Unknown]
  - Ecchymosis [Unknown]
  - Back pain [Unknown]
  - Arthralgia [Unknown]
  - Ligament sprain [Unknown]
  - Overdose [Unknown]
  - Product use issue [Unknown]
  - Intentional product misuse [Unknown]
  - Limb injury [Unknown]
  - Joint injury [Unknown]
  - Peripheral swelling [Unknown]
  - Pain in extremity [Unknown]

NARRATIVE: CASE EVENT DATE: 20160116
